FAERS Safety Report 13339692 (Version 3)
Quarter: 2017Q2

REPORT INFORMATION
  Report Type: Report from Study
  Country: None (occurrence: BR)
  Receive Date: 20170315
  Receipt Date: 20170411
  Transmission Date: 20170830
  Serious: Yes (Other)
  Sender: FDA-Public Use
  Company Number: BR-ABBVIE-17P-020-1906824-00

PATIENT
  Sex: Female

DRUGS (5)
  1. SYNTHROID [Suspect]
     Active Substance: LEVOTHYROXINE SODIUM
     Route: 063
     Dates: start: 1993, end: 1994
  2. SYNTHROID [Suspect]
     Active Substance: LEVOTHYROXINE SODIUM
     Indication: HYPOTHYROIDISM
     Dosage: 100 MCG IN THE MORNING
     Route: 048
  3. SYNTHROID [Suspect]
     Active Substance: LEVOTHYROXINE SODIUM
     Dosage: FORM STRENGTH: HIGHER THAN 100 MCG, START DATE: 27 YRS AGO, DURATION: FEW TIME
     Route: 048
  4. SYNTHROID [Suspect]
     Active Substance: LEVOTHYROXINE SODIUM
     Route: 064
     Dates: start: 1992, end: 19930427
  5. PIROXICAM. [Suspect]
     Active Substance: PIROXICAM
     Indication: ANTIINFLAMMATORY THERAPY
     Dosage: DURING ARTHROSIS CRISIS, FOR AROUND 1 AND A HALF YRS
     Route: 060

REACTIONS (13)
  - Inappropriate schedule of drug administration [Not Recovered/Not Resolved]
  - Gastritis [Not Recovered/Not Resolved]
  - Leiomyoma [Recovered/Resolved]
  - Osteoarthritis [Recovered/Resolved]
  - Abdominal pain upper [Not Recovered/Not Resolved]
  - Cholelithiasis [Recovered/Resolved]
  - Menorrhagia [Recovered/Resolved]
  - Spinal disorder [Recovered/Resolved]
  - Hyperchlorhydria [Not Recovered/Not Resolved]
  - Drug dose omission [Unknown]
  - Anxiety [Unknown]
  - Maternal exposure during pregnancy [Unknown]
  - Stress [Unknown]
